FAERS Safety Report 19363679 (Version 1)
Quarter: 2021Q2

REPORT INFORMATION
  Report Type: Spontaneous
  Country: US (occurrence: US)
  Receive Date: 20210602
  Receipt Date: 20210602
  Transmission Date: 20210717
  Serious: No
  Sender: FDA-Public Use
  Company Number: US-SLATE RUN PHARMACEUTICALS-21US000506

PATIENT

DRUGS (1)
  1. VANCOMYCIN HYDROCHLORIDE USP [Suspect]
     Active Substance: VANCOMYCIN HYDROCHLORIDE
     Indication: PRODUCT USED FOR UNKNOWN INDICATION
     Route: 065

REACTIONS (10)
  - Drug hypersensitivity [Unknown]
  - Flushing [Unknown]
  - Infusion related reaction [Unknown]
  - Palmar erythema [Unknown]
  - Erythema [Unknown]
  - Red man syndrome [Unknown]
  - Pruritus [Unknown]
  - Skin warm [Unknown]
  - Rash [Unknown]
  - Urticaria [Unknown]
